FAERS Safety Report 7029236-0 (Version None)
Quarter: 2010Q3

REPORT INFORMATION
  Report Type: 
  Country: None (occurrence: None)
  Receive Date: 20100930
  Receipt Date: 20100915
  Transmission Date: 20110219
  Serious: Yes (Death)
  Sender: FDA-Public Use
  Company Number: AE 2010-206

PATIENT
  Age: 46 Year
  Sex: Female
  Weight: 79.8331 kg

DRUGS (21)
  1. FAZACLO ODT [Suspect]
     Indication: SCHIZOPHRENIA, PARANOID TYPE
     Dosage: 400 MG DAILY PO
     Route: 048
     Dates: start: 20081203, end: 20100713
  2. GLIPIZIDE [Concomitant]
  3. DOCUSATE SODIUM [Concomitant]
  4. FIBERCON [Concomitant]
  5. REQUIP [Concomitant]
  6. PREMARIN [Concomitant]
  7. SELENIUM [Concomitant]
  8. CRESTOR [Concomitant]
  9. PRILOSEC [Concomitant]
  10. URECHOLINE [Concomitant]
  11. PROSCAR [Concomitant]
  12. SPIRONOLACTONE [Concomitant]
  13. ALBUTEROL INHALER [Concomitant]
  14. NAPROXEN [Concomitant]
  15. POTASSIUM [Concomitant]
  16. LORAZEPAM [Concomitant]
  17. TRICOR [Concomitant]
  18. AMANATEDINE [Concomitant]
  19. LITHIUM CARBONATE [Concomitant]
  20. LASIX [Concomitant]
  21. METFORMIN HCL [Concomitant]

REACTIONS (5)
  - BACK PAIN [None]
  - CARDIAC FAILURE [None]
  - DIZZINESS [None]
  - DYSPEPSIA [None]
  - SCIATICA [None]
